FAERS Safety Report 5086811-0 (Version None)
Quarter: 2006Q3

REPORT INFORMATION
  Report Type: 
  Country: None (occurrence: None)
  Receive Date: 20060823
  Receipt Date: 20060815
  Transmission Date: 20061208
  Serious: Yes (Other)
  Sender: FDA-Public Use
  Company Number: PHEH2006US10463

PATIENT
  Sex: Male
  Weight: 53.514 kg

DRUGS (1)
  1. EXJADE [Suspect]

REACTIONS (2)
  - ARTHRALGIA [None]
  - WEIGHT DECREASED [None]
